FAERS Safety Report 20137095 (Version 4)
Quarter: 2022Q1

REPORT INFORMATION
  Report Type: Report from Study
  Country: NL (occurrence: NL)
  Receive Date: 20211201
  Receipt Date: 20220328
  Transmission Date: 20220423
  Serious: Yes (Life-Threatening, Hospitalization, Other)
  Sender: FDA-Public Use
  Company Number: NL-GILEAD-2021-0552876

PATIENT
  Age: 56 Year
  Sex: Male
  Weight: 80 kg

DRUGS (71)
  1. BREXUCABTAGENE AUTOLEUCEL [Suspect]
     Active Substance: BREXUCABTAGENE AUTOLEUCEL
     Indication: Mantle cell lymphoma
     Dosage: 1 DOSAGE FORM, ONCE; 68
     Route: 042
     Dates: start: 20211005, end: 20211005
  2. CYCLOPHOSPHAMIDE [Suspect]
     Active Substance: CYCLOPHOSPHAMIDE
     Indication: Bone marrow conditioning regimen
     Dosage: 1040
     Route: 042
     Dates: start: 20210930, end: 20211002
  3. FLUDARABINE [Suspect]
     Active Substance: FLUDARABINE PHOSPHATE
     Indication: Bone marrow conditioning regimen
     Dosage: 6.25
     Route: 042
     Dates: start: 20210930, end: 20211002
  4. MESNA [Suspect]
     Active Substance: MESNA
     Indication: Prophylaxis
     Dosage: 400
     Route: 042
     Dates: start: 20210930, end: 20210930
  5. MESNA [Suspect]
     Active Substance: MESNA
     Dosage: 400
     Route: 042
     Dates: start: 20211001, end: 20211002
  6. FLUDEOXYGLUCOSE [Concomitant]
     Active Substance: FLUDEOXYGLUCOSE
     Dosage: 1,OTHER,ONCE
     Route: 042
     Dates: start: 20210923, end: 20210923
  7. FLUDEOXYGLUCOSE [Concomitant]
     Active Substance: FLUDEOXYGLUCOSE
     Dosage: 1,OTHER,ONCE
     Route: 042
     Dates: start: 20211102, end: 20211102
  8. IOBITRIDOL [Concomitant]
     Active Substance: IOBITRIDOL
     Dosage: 90,ML,ONCE
     Route: 042
     Dates: start: 20210923, end: 20210923
  9. IOBITRIDOL [Concomitant]
     Active Substance: IOBITRIDOL
     Dosage: 90,ML,ONCE
     Route: 042
     Dates: start: 20211102, end: 20211102
  10. HEPARIN [Concomitant]
     Active Substance: HEPARIN SODIUM
     Dosage: 3,ML,ONCE
     Route: 042
     Dates: start: 20210930, end: 20210930
  11. LIDOCAINE [Concomitant]
     Active Substance: LIDOCAINE
     Dosage: 200,MG,ONCE
     Route: 058
     Dates: start: 20210930, end: 20210930
  12. METOCLOPRAMIDE [Concomitant]
     Active Substance: METOCLOPRAMIDE
     Dosage: 10,MG,OTHER
     Route: 048
     Dates: start: 20210930, end: 20211018
  13. SODIUM BICARBONATE [Concomitant]
     Active Substance: SODIUM BICARBONATE
     Dosage: 1,OTHER,ONCE
     Route: 058
     Dates: start: 20210930, end: 20210930
  14. ONDANSETRON [Concomitant]
     Active Substance: ONDANSETRON
     Dosage: 8,MG,TWICE DAILY
     Route: 048
     Dates: start: 20210930, end: 20211011
  15. RASBURICASE [Concomitant]
     Active Substance: RASBURICASE
     Dosage: 3,MG,ONCE
     Route: 042
     Dates: start: 20210930, end: 20210930
  16. RASBURICASE [Concomitant]
     Active Substance: RASBURICASE
     Dosage: 3,MG,ONCE
     Route: 042
     Dates: start: 20211005, end: 20211005
  17. CLEMASTINE [Concomitant]
     Active Substance: CLEMASTINE
     Dosage: 2,MG,ONCE
     Route: 042
     Dates: start: 20211005, end: 20211005
  18. SULFAMETHOXAZOLE\TRIMETHOPRIM [Concomitant]
     Active Substance: SULFAMETHOXAZOLE\TRIMETHOPRIM
     Dosage: 480,MG,DAILY
     Route: 048
     Dates: start: 20211005
  19. VALACYCLOVIR HYDROCHLORIDE [Concomitant]
     Active Substance: VALACYCLOVIR HYDROCHLORIDE
     Dosage: 500,MG,TWICE DAILY
     Route: 048
     Dates: start: 20211005
  20. ACETAMINOPHEN [Concomitant]
     Active Substance: ACETAMINOPHEN
     Dosage: 1000,MG,ONCE
     Route: 048
     Dates: start: 20211005, end: 20211005
  21. ACETAMINOPHEN [Concomitant]
     Active Substance: ACETAMINOPHEN
     Dosage: 1000,MG,TWICE DAILY
     Route: 048
     Dates: start: 20211008, end: 20211009
  22. ACETAMINOPHEN [Concomitant]
     Active Substance: ACETAMINOPHEN
     Dosage: 500,MG,OTHER
     Route: 048
     Dates: start: 20211009, end: 20211011
  23. ACETAMINOPHEN [Concomitant]
     Active Substance: ACETAMINOPHEN
     Dosage: 500,MG,OTHER
     Route: 048
     Dates: start: 20211012, end: 20211013
  24. ACETAMINOPHEN [Concomitant]
     Active Substance: ACETAMINOPHEN
     Dosage: 1000,MG,THREE TIMES DAILY
     Route: 048
     Dates: start: 20211013, end: 20211014
  25. ACETAMINOPHEN [Concomitant]
     Active Substance: ACETAMINOPHEN
     Dosage: 1000,MG,THREE TIMES DAILY
     Route: 050
     Dates: start: 20211013, end: 20211015
  26. SODIUM CHLORIDE [Concomitant]
     Active Substance: SODIUM CHLORIDE
     Dosage: 500 ML, ONCE
     Route: 042
     Dates: start: 20210930, end: 20211003
  27. SODIUM CHLORIDE [Concomitant]
     Active Substance: SODIUM CHLORIDE
     Dosage: 84,OTHER,CONTINUOUS
     Route: 042
     Dates: start: 20211011, end: 20211012
  28. SODIUM CHLORIDE [Concomitant]
     Active Substance: SODIUM CHLORIDE
     Dosage: 10,OTHER,CONTINUOUS
     Route: 042
     Dates: start: 20211011, end: 20211014
  29. SODIUM CHLORIDE [Concomitant]
     Active Substance: SODIUM CHLORIDE
     Dosage: 5,OTHER,CONTINUOUS
     Route: 042
     Dates: start: 20211011, end: 20211014
  30. SODIUM CHLORIDE [Concomitant]
     Active Substance: SODIUM CHLORIDE
     Dosage: 2,OTHER,CONTINUOUS
     Route: 042
     Dates: start: 20211113, end: 20211114
  31. SODIUM CHLORIDE [Concomitant]
     Active Substance: SODIUM CHLORIDE
     Dosage: 10,OTHER,CONTINUOUS
     Route: 042
     Dates: start: 20211014, end: 20211020
  32. SODIUM CHLORIDE [Concomitant]
     Active Substance: SODIUM CHLORIDE
     Dosage: 1000 ML, ONCE
     Route: 042
     Dates: start: 20210930, end: 20211003
  33. TOCILIZUMAB [Concomitant]
     Active Substance: TOCILIZUMAB
     Dosage: 641.6,MG,ONCE
     Route: 042
     Dates: start: 20211009, end: 20211009
  34. TOCILIZUMAB [Concomitant]
     Active Substance: TOCILIZUMAB
     Dosage: 621.6,MG,ONCE
     Route: 042
     Dates: start: 20211010, end: 20211010
  35. TOCILIZUMAB [Concomitant]
     Active Substance: TOCILIZUMAB
     Dosage: 660,MG,ONCE
     Route: 042
     Dates: start: 20211011, end: 20211011
  36. TOCILIZUMAB [Concomitant]
     Active Substance: TOCILIZUMAB
     Dosage: 641.6,MG,ONCE
     Route: 042
     Dates: start: 20211009, end: 20211010
  37. CEFTRIAXONE [Concomitant]
     Active Substance: CEFTRIAXONE
     Dosage: 2000,MG,DAILY
     Route: 042
     Dates: start: 20211008, end: 20211012
  38. CEFTRIAXONE [Concomitant]
     Active Substance: CEFTRIAXONE
     Dosage: 2000,MG,TWICE DAILY
     Route: 042
     Dates: start: 20211013, end: 20211015
  39. GENTAMICIN [Concomitant]
     Active Substance: GENTAMICIN
     Dosage: 392,MG,ONCE
     Route: 042
     Dates: start: 20211010, end: 20211010
  40. DEXAMETHASONE [Concomitant]
     Active Substance: DEXAMETHASONE
     Dosage: 10,MG,ONCE
     Route: 042
     Dates: start: 20211010, end: 20211010
  41. DEXAMETHASONE [Concomitant]
     Active Substance: DEXAMETHASONE
     Dosage: 10,MG,THREE TIMES DAILY
     Route: 042
     Dates: start: 20211012, end: 20211012
  42. DEXAMETHASONE [Concomitant]
     Active Substance: DEXAMETHASONE
     Dosage: 10,MG,TWICE DAILY
     Route: 048
     Dates: start: 20211020, end: 20211022
  43. DEXAMETHASONE [Concomitant]
     Active Substance: DEXAMETHASONE
     Dosage: 5,MG,DAILY
     Route: 048
     Dates: start: 20211023, end: 20211024
  44. DEXAMETHASONE [Concomitant]
     Active Substance: DEXAMETHASONE
     Dosage: 2.5,MG,DAILY
     Route: 048
     Dates: start: 20211025, end: 20211027
  45. DEXAMETHASONE [Concomitant]
     Active Substance: DEXAMETHASONE
     Dosage: 10 MG, BID
     Route: 042
     Dates: start: 20211011, end: 20211011
  46. OXYGEN [Concomitant]
     Active Substance: OXYGEN
     Dosage: 2,L,CONTINUOUS
     Route: 045
     Dates: start: 20211010, end: 20211014
  47. OXYGEN [Concomitant]
     Active Substance: OXYGEN
     Dosage: 3,L,CONTINUOUS
     Route: 045
     Dates: start: 20211014, end: 20211015
  48. OXYGEN [Concomitant]
     Active Substance: OXYGEN
     Dosage: 2,L,CONTINUOUS
     Route: 045
     Dates: start: 20211015, end: 20211018
  49. NADROPARIN [Concomitant]
     Active Substance: NADROPARIN
     Dosage: 2.850,IU,DAILY
     Route: 058
     Dates: start: 20211011, end: 20211014
  50. NOREPINEPHRINE [Concomitant]
     Active Substance: NOREPINEPHRINE
     Dosage: 8,OTHER,CONTINUOUS
     Route: 042
     Dates: start: 20211011, end: 20211011
  51. NOREPINEPHRINE [Concomitant]
     Active Substance: NOREPINEPHRINE
     Dosage: 7,OTHER,CONTINUOUS
     Route: 042
     Dates: start: 20211011, end: 20211012
  52. NOREPINEPHRINE [Concomitant]
     Active Substance: NOREPINEPHRINE
     Dosage: 0.1,OTHER,CONTINUOUS
     Route: 042
     Dates: start: 20211012, end: 20211012
  53. NOREPINEPHRINE [Concomitant]
     Active Substance: NOREPINEPHRINE
     Dosage: 10,OTHER,CONTINUOUS
     Route: 042
     Dates: start: 20211011, end: 20211011
  54. NOREPINEPHRINE [Concomitant]
     Active Substance: NOREPINEPHRINE
     Dosage: 15,OTHER,CONTINUOUS
     Route: 042
     Dates: start: 20211011, end: 20211011
  55. NOREPINEPHRINE [Concomitant]
     Active Substance: NOREPINEPHRINE
     Dosage: 20,OTHER,CONTINUOUS
     Route: 042
     Dates: start: 20211011, end: 20211011
  56. NOREPINEPHRINE [Concomitant]
     Active Substance: NOREPINEPHRINE
     Dosage: 22,OTHER,CONTINUOUS
     Route: 042
     Dates: start: 20211011, end: 20211011
  57. NOREPINEPHRINE [Concomitant]
     Active Substance: NOREPINEPHRINE
     Dosage: 19,OTHER,CONTINUOUS
     Route: 042
     Dates: start: 20211011, end: 20211011
  58. NOREPINEPHRINE [Concomitant]
     Active Substance: NOREPINEPHRINE
     Dosage: 14,OTHER,CONTINUOUS
     Route: 042
     Dates: start: 20211011, end: 20211011
  59. ELECTROLYTES NOS [Concomitant]
     Active Substance: ELECTROLYTES NOS
     Dosage: 500,ML,FOUR TIMES DAILY
     Route: 042
     Dates: start: 20211011, end: 20211012
  60. FILGRASTIM [Concomitant]
     Active Substance: FILGRASTIM
     Dosage: 0.5,ML,DAILY
     Route: 058
     Dates: start: 20211103
  61. FILGRASTIM [Concomitant]
     Active Substance: FILGRASTIM
     Dosage: 0.5,ML,DAILY
     Route: 058
     Dates: start: 20211103, end: 20220203
  62. ACYCLOVIR [Concomitant]
     Active Substance: ACYCLOVIR
     Dosage: 770,MG,THREE TIMES DAILY
     Route: 042
     Dates: start: 20211013, end: 20211015
  63. METHYLPREDNISOLONE [Concomitant]
     Active Substance: METHYLPREDNISOLONE
     Dosage: 1000,MG,DAILY
     Route: 042
     Dates: start: 20211013, end: 20211013
  64. METHYLPREDNISOLONE [Concomitant]
     Active Substance: METHYLPREDNISOLONE
     Dosage: 1000,MG,TWICE DAILY
     Route: 042
     Dates: start: 20211013, end: 20211015
  65. METHYLPREDNISOLONE [Concomitant]
     Active Substance: METHYLPREDNISOLONE
     Dosage: 1000,MG,DAILY
     Route: 042
     Dates: start: 20211016, end: 20211016
  66. METHYLPREDNISOLONE [Concomitant]
     Active Substance: METHYLPREDNISOLONE
     Dosage: 500,MG,DAILY
     Route: 042
     Dates: start: 20211017, end: 20211018
  67. METHYLPREDNISOLONE [Concomitant]
     Active Substance: METHYLPREDNISOLONE
     Dosage: 250,MG,DAILY
     Route: 042
     Dates: start: 20211019, end: 20211019
  68. PROPOFOL [Concomitant]
     Active Substance: PROPOFOL
     Dosage: 1.818,OTHER,CONTINUOUS
     Route: 042
     Dates: start: 20211013, end: 20211013
  69. ESOMEPRAZOLE [Concomitant]
     Active Substance: ESOMEPRAZOLE
     Dosage: 40,MG,DAILY
     Route: 048
     Dates: start: 20211014, end: 20211029
  70. LEVETIRACETAM [Concomitant]
     Active Substance: LEVETIRACETAM
     Dosage: 750,MG,TWICE DAILY
     Route: 048
     Dates: start: 20211013
  71. LEVETIRACETAM [Concomitant]
     Active Substance: LEVETIRACETAM
     Dosage: 500,MG,TWICE DAILY
     Route: 048
     Dates: start: 20211013, end: 20211013

REACTIONS (6)
  - Generalised tonic-clonic seizure [Recovered/Resolved]
  - Diplopia [Recovered/Resolved]
  - Delirium [Recovered/Resolved]
  - Dysarthria [Recovered/Resolved]
  - Amnesia [Recovered/Resolved]
  - Aphasia [Recovered/Resolved]

NARRATIVE: CASE EVENT DATE: 20211013
